FAERS Safety Report 6522791-6 (Version None)
Quarter: 2009Q4

REPORT INFORMATION
  Report Type: 
  Country: None (occurrence: None)
  Receive Date: 20091230
  Receipt Date: 20091221
  Transmission Date: 20100525
  Serious: Yes (Hospitalization)
  Sender: FDA-Public Use
  Company Number: US-ABBOTT-09P-163-0616159-00

PATIENT
  Sex: Male
  Weight: 118.49 kg

DRUGS (3)
  1. ZEMPLAR [Suspect]
     Indication: HYPERPARATHYROIDISM
     Route: 048
     Dates: start: 20090916
  2. FUROSEMIDE [Suspect]
     Indication: DIURETIC THERAPY
  3. METOLAZONE [Suspect]
     Indication: DIURETIC THERAPY
     Dates: end: 20090901

REACTIONS (4)
  - BLOOD CREATININE INCREASED [None]
  - CELLULITIS [None]
  - POLYURIA [None]
  - RENAL FAILURE ACUTE [None]
